FAERS Safety Report 11766214 (Version 4)
Quarter: 2016Q1

REPORT INFORMATION
  Report Type: Spontaneous
  Country: CA (occurrence: CA)
  Receive Date: 20151123
  Receipt Date: 20160209
  Transmission Date: 20160525
  Serious: Yes (Other)
  Sender: FDA-Public Use
  Company Number: CA-AMGEN-CANSP2015123006

PATIENT
  Age: 68 Year
  Sex: Female

DRUGS (4)
  1. ENBREL [Suspect]
     Active Substance: ETANERCEPT
     Indication: RHEUMATOID ARTHRITIS
     Dosage: 50 MG, QWK
     Route: 065
     Dates: start: 2011, end: 201504
  2. INSULINE                           /01223401/ [Concomitant]
     Active Substance: INSULIN NOS
     Indication: DIABETES MELLITUS
  3. METHOTREXATE [Concomitant]
     Active Substance: METHOTREXATE
     Dosage: UNK
     Dates: start: 2011, end: 201504
  4. ARAVA [Concomitant]
     Active Substance: LEFLUNOMIDE

REACTIONS (9)
  - Arthritis [Unknown]
  - Drug ineffective [Unknown]
  - Joint swelling [Unknown]
  - Rheumatoid arthritis [Unknown]
  - Arthralgia [Unknown]
  - Hypoglycaemia [Unknown]
  - Drug effect decreased [Unknown]
  - Renal haemorrhage [Unknown]
  - Adverse reaction [Unknown]

NARRATIVE: CASE EVENT DATE: 20151028
